FAERS Safety Report 10965878 (Version 3)
Quarter: 2015Q3

REPORT INFORMATION
  Report Type: Spontaneous
  Country: IT (occurrence: IT)
  Receive Date: 20150330
  Receipt Date: 20150805
  Transmission Date: 20151125
  Serious: Yes (Other)
  Sender: FDA-Public Use
  Company Number: IT-TEVA-549971ACC

PATIENT
  Age: 71 Year
  Sex: Male

DRUGS (2)
  1. LEVOFLOXACINA SANDOZ - 500 MG COMPRESSE RIVESTITE CON FILM [Suspect]
     Active Substance: LEVOFLOXACIN
     Indication: BRONCHITIS
     Dosage: 1000 MILLIGRAM DAILY;
     Route: 048
     Dates: start: 20150312, end: 20150313
  2. RABEPRAZOLO TEVA - 20 MG COMPRESSE GASTRORESISTENTI - TEVA ITALIA S.R. [Suspect]
     Active Substance: RABEPRAZOLE SODIUM
     Indication: GASTROOESOPHAGEAL REFLUX DISEASE
     Dosage: 20 MILLIGRAM DAILY; GASTRO-RESISTANT TABLET
     Route: 048
     Dates: start: 20150312, end: 20150313

REACTIONS (1)
  - Seizure [Recovered/Resolved]

NARRATIVE: CASE EVENT DATE: 20150313
